FAERS Safety Report 14848655 (Version 2)
Quarter: 2018Q3

REPORT INFORMATION
  Report Type: Spontaneous
  Country: US (occurrence: US)
  Receive Date: 20180504
  Receipt Date: 20180806
  Transmission Date: 20181010
  Serious: Yes (Other)
  Sender: FDA-Public Use
  Company Number: US-TEVA-2018-US-887301

PATIENT
  Sex: Female

DRUGS (1)
  1. TRAZODONE [Suspect]
     Active Substance: TRAZODONE HYDROCHLORIDE
     Indication: SLEEP DISORDER
     Route: 065
     Dates: start: 201801

REACTIONS (7)
  - Ankle fracture [Unknown]
  - Gait inability [Recovered/Resolved]
  - Chest pain [Recovered/Resolved]
  - Mobility decreased [Recovered/Resolved]
  - Chest discomfort [Recovered/Resolved]
  - Gait disturbance [Recovered/Resolved]
  - Drug prescribing error [Unknown]

NARRATIVE: CASE EVENT DATE: 201804
